FAERS Safety Report 9720696 (Version 1)
Quarter: 2013Q4

REPORT INFORMATION
  Report Type: Spontaneous
  Country: IT (occurrence: IT)
  Receive Date: 20131129
  Receipt Date: 20131129
  Transmission Date: 20140711
  Serious: Yes (Other)
  Sender: FDA-Public Use
  Company Number: PHHY2013IT138377

PATIENT
  Age: 62 Year
  Sex: Female

DRUGS (4)
  1. AFINITOR [Suspect]
     Indication: BREAST CANCER
     Dosage: 10 MG, QD
     Route: 048
     Dates: start: 20131017, end: 20131025
  2. AFINITOR [Suspect]
     Dosage: 10 MG, QD
     Route: 048
  3. AROMASIN [Concomitant]
     Dosage: 25 MG
     Route: 048
  4. DIBASE [Concomitant]

REACTIONS (1)
  - Pleurisy [Recovered/Resolved]
